FAERS Safety Report 9745081 (Version 1)
Quarter: 2013Q4

REPORT INFORMATION
  Report Type: Report from Study
  Country: US (occurrence: US)
  Receive Date: 20131211
  Receipt Date: 20131211
  Transmission Date: 20140711
  Serious: Yes (Death)
  Sender: FDA-Public Use
  Company Number: US-ROCHE-1317548

PATIENT
  Age: 67 Year
  Sex: 0

DRUGS (1)
  1. PERJETA [Suspect]
     Indication: BREAST CANCER METASTATIC
     Dosage: 2L DOSE: EVERY 4
     Route: 065

REACTIONS (1)
  - Death [Fatal]
